FAERS Safety Report 8933947 (Version 1)
Quarter: 2012Q4

REPORT INFORMATION
  Report Type: 
  Country: US (occurrence: US)
  Receive Date: 20121129
  Receipt Date: 20121129
  Transmission Date: 20130627
  Serious: Yes (Death)
  Sender: FDA-Public Use
  Company Number: US-PFIZER INC-2012296095

PATIENT
  Age: 54 Year
  Sex: Female

DRUGS (1)
  1. REVATIO [Suspect]
     Indication: PRIMARY PULMONARY HYPERTENSION
     Dosage: 20mg 3 tablets, 3x/day
     Dates: start: 20101124

REACTIONS (1)
  - Lung transplant [Fatal]
